FAERS Safety Report 14930729 (Version 1)
Quarter: 2018Q2

REPORT INFORMATION
  Report Type: Spontaneous
  Country: GB (occurrence: GB)
  Receive Date: 20180523
  Receipt Date: 20180523
  Transmission Date: 20180711
  Serious: Yes (Hospitalization)
  Sender: FDA-Public Use
  Company Number: GB-TEVA-2018-GB-894896

PATIENT
  Age: 61 Year
  Sex: Male

DRUGS (14)
  1. AMLODIPINE [Concomitant]
     Active Substance: AMLODIPINE BESYLATE
     Dosage: 10 MILLIGRAM DAILY; REPEAT PRESCRIPTION.
     Route: 065
     Dates: start: 20170904
  2. ATORVASTATIN [Suspect]
     Active Substance: ATORVASTATIN
     Dosage: 20 MILLIGRAM DAILY;
     Route: 065
  3. LANSOPRAZOLE. [Concomitant]
     Active Substance: LANSOPRAZOLE
     Dosage: 30 MILLIGRAM DAILY; EACH MORNING. REPEAT PRESCRIPTION.
     Route: 065
  4. CALCIPOTRIOL [Concomitant]
     Active Substance: CALCIPOTRIENE
     Dosage: 1 DOSAGE FORMS DAILY; TO AFFECTED AREA. REPEAT PRESCRIPTION. NOT REQUIRED CURRENTLY.
     Route: 065
     Dates: start: 20170726
  5. COLCHICINE. [Concomitant]
     Active Substance: COLCHICINE
     Dosage: 1000 MICROGRAM DAILY;
     Route: 065
     Dates: start: 20170717
  6. BISOPROLOL [Concomitant]
     Active Substance: BISOPROLOL
     Dosage: 5 MILLIGRAM DAILY; REPEAT PRESCRIPTION
     Route: 065
  7. BETAMETHASONE DIPROPIONATE. [Concomitant]
     Active Substance: BETAMETHASONE DIPROPIONATE
     Dosage: 1 DOSAGE FORMS DAILY; TO AFFECTED AREA. REPEAT PRESCRIPTION. NOT REQUIRED CURRENTLY.
     Route: 065
  8. WARFARIN [Suspect]
     Active Substance: WARFARIN
     Dosage: 1MG AND 3 MG. TAKE AS PRESCRIBED IN ANTICOAGULANT TREATMENT BOOK.
     Route: 065
  9. CLOBETASONE [Concomitant]
     Active Substance: CLOBETASONE
     Dosage: THINLY ONCE OR TWICE A DAY. REPEAT PRESCRIPTION.
     Route: 065
  10. NEUTROGENA TGEL THERAPEUTIC [Concomitant]
     Active Substance: COAL TAR
     Dosage: AS DIRECTED. REPEAT PRESCRIPTION
     Route: 065
  11. ALLOPURINOL. [Concomitant]
     Active Substance: ALLOPURINOL
     Dosage: 100 MILLIGRAM DAILY; AFTER FOOD. REPEAT PRESCRIPTION
     Route: 065
  12. AQUAMAX CREAM [Concomitant]
     Dosage: AS DIRECTED. REPEAT PRESCRIPTION.
     Route: 065
  13. STELARA [Concomitant]
     Active Substance: USTEKINUMAB
     Dosage: 90MG/1ML.
     Route: 065
  14. FUROSEMIDE. [Concomitant]
     Active Substance: FUROSEMIDE
     Dosage: 20 MILLIGRAM DAILY; SHORT COURSE FINISHED. EACH MORNING.
     Route: 065
     Dates: start: 20170629

REACTIONS (1)
  - Epistaxis [Recovered/Resolved]
